FAERS Safety Report 9242103 (Version 1)
Quarter: 2013Q2

REPORT INFORMATION
  Report Type: Spontaneous
  Country: PL (occurrence: PL)
  Receive Date: 20130419
  Receipt Date: 20130419
  Transmission Date: 20140414
  Serious: Yes (Other)
  Sender: FDA-Public Use
  Company Number: PL-ROXANE LABORATORIES, INC.-2013-RO-00486RO

PATIENT
  Age: 30 Year
  Sex: Female

DRUGS (5)
  1. OXCARBAZEPINE [Suspect]
     Indication: POST-TRAUMATIC EPILEPSY
     Dosage: 1200 MG
  2. CLARITHROMYCIN [Suspect]
     Indication: RESPIRATORY TRACT INFECTION
  3. BROMOCRIPTINE [Suspect]
     Indication: PROLACTINOMA
     Dosage: 7.5 MG
  4. CABERGOLINE [Suspect]
     Indication: PROLACTINOMA
  5. CABERGOLINE [Suspect]

REACTIONS (7)
  - Therapeutic response decreased [Recovered/Resolved]
  - Drug interaction [Recovered/Resolved]
  - Orthostatic hypotension [Recovered/Resolved]
  - Mucosal dryness [Recovered/Resolved]
  - Constipation [Recovered/Resolved]
  - Psychomotor hyperactivity [Recovered/Resolved]
  - Vomiting [Recovered/Resolved]
